FAERS Safety Report 6136303-2 (Version None)
Quarter: 2009Q1

REPORT INFORMATION
  Report Type: 
  Country: None (occurrence: None)
  Receive Date: 20090330
  Receipt Date: 20090326
  Transmission Date: 20090719
  Serious: Yes (Death)
  Sender: FDA-Public Use
  Company Number: CO-BRISTOL-MYERS SQUIBB COMPANY-14562201

PATIENT
  Age: 52 Year
  Sex: Female

DRUGS (1)
  1. ORENCIA [Suspect]
     Dates: start: 20081026

REACTIONS (1)
  - CARDIAC FAILURE [None]
